FAERS Safety Report 10675367 (Version 5)
Quarter: 2015Q2

REPORT INFORMATION
  Report Type: Report from Study
  Country: US (occurrence: US)
  Receive Date: 20141224
  Receipt Date: 20150625
  Transmission Date: 20150821
  Serious: Yes (Hospitalization)
  Sender: FDA-Public Use
  Company Number: US-ASTRAZENECA-2014SE97020

PATIENT
  Age: 78 Year
  Sex: Female
  Weight: 70.5 kg

DRUGS (9)
  1. BLINDED UNSPECIFIED DRUG [Suspect]
     Active Substance: UNSPECIFIED INGREDIENT
     Indication: BREAST CANCER
     Route: 065
     Dates: start: 20141121, end: 20141202
  2. COMPAZINE [Concomitant]
     Active Substance: PROCHLORPERAZINE MALEATE
  3. METOPROLOL [Concomitant]
     Active Substance: METOPROLOL
     Dates: end: 20141202
  4. BLINDED UNSPECIFIED DRUG [Suspect]
     Active Substance: UNSPECIFIED INGREDIENT
     Indication: BREAST CANCER
     Dosage: DOSE REDUCED
     Route: 065
     Dates: start: 20141218
  5. IMODIUM [Concomitant]
     Active Substance: LOPERAMIDE HYDROCHLORIDE
  6. FULVESTRANT [Suspect]
     Active Substance: FULVESTRANT
     Indication: BREAST CANCER
     Dosage: 500 MG
     Route: 030
     Dates: start: 20141121, end: 20141202
  7. FULVESTRANT [Suspect]
     Active Substance: FULVESTRANT
     Indication: BREAST CANCER
     Dosage: DOSE REDUCED
     Route: 030
     Dates: start: 20141218
  8. LASIX [Concomitant]
     Active Substance: FUROSEMIDE
     Dates: end: 20141202
  9. LISINOPRIL. [Concomitant]
     Active Substance: LISINOPRIL
     Dates: end: 20141202

REACTIONS (1)
  - Acute kidney injury [Recovered/Resolved]

NARRATIVE: CASE EVENT DATE: 20141203
